FAERS Safety Report 8516798-7 (Version None)
Quarter: 2012Q3

REPORT INFORMATION
  Report Type: 
  Country: None (occurrence: None)
  Receive Date: 20120718
  Receipt Date: 20120711
  Transmission Date: 20120928
  Serious: Yes (Other)
  Sender: FDA-Public Use
  Company Number: US-ALEXION-A201201138

PATIENT
  Sex: Male

DRUGS (24)
  1. RENVELA [Concomitant]
     Dosage: 1 PKG W/MEALS, 1 TSP PM W/FEEDINGS
  2. LEVETIRACETAM [Concomitant]
     Dosage: 125 MG, QD
  3. EPOGEN [Concomitant]
     Dosage: 3200 UNITS MWF
  4. FOLIC ACID [Concomitant]
     Dosage: 1 TAB QD (1MG/5ML)
  5. POLY-VI-SOL [Concomitant]
     Dosage: UNK, QD
  6. COZAAR [Concomitant]
     Dosage: 12.5 MG, BID
  7. GENTAK [Concomitant]
     Dosage: TO EXIT SITE, QD
     Route: 061
  8. KAYEXALATE [Concomitant]
     Dosage: 9 MG ON NON-DIALYSIS DAYS, PRN
  9. ZEMPLAR [Concomitant]
     Dosage: 2 MCG, MWF
  10. AMLODIPINE [Concomitant]
     Dosage: 5 MG, BID
  11. AMLODIPINE [Concomitant]
     Dosage: 2.5 MG MWF
  12. FERROUS SULFATE TAB [Concomitant]
     Dosage: 3 MLS (30 MG), QD
  13. CLONIDINE [Concomitant]
     Dosage: 0.2MG/ML SUSP 0.5-1ML FOR SBP}140
  14. BENADRYL [Concomitant]
     Dosage: 12.5 MG, Q 4 HRS PRN
  15. ENALAPRIL MALEATE [Concomitant]
     Dosage: 7.5 MG, BID
     Route: 048
  16. PRILOSEC [Concomitant]
     Dosage: 10 MG QD (5ML)
     Route: 048
  17. NIFEDIPINE [Concomitant]
     Dosage: (4MG/ML) 1 ML FOR SBP.115, PRN
  18. MIRALAX [Concomitant]
     Dosage: 1CAPFUL, QD PRN
  19. DIASTAT [Concomitant]
     Indication: CONVULSION
     Dosage: 4ML BY 2ML FOR SEIZURE LASTING.3 MIN, PRN
     Route: 054
  20. EMLA [Concomitant]
     Dosage: 45 GM TUBE (APPLY TO INFUSAPORT SITE 2 HRS PRIOR TO USE)
     Route: 061
  21. SOLIRIS [Suspect]
     Indication: HAEMOLYTIC URAEMIC SYNDROME
     Dosage: UNK
     Route: 042
  22. COREG [Concomitant]
     Dosage: 3.125MG/2ML, BID
  23. HYDRALAZINE HCL [Concomitant]
     Dosage: 3MG/1ML FOR SBP}125, PRN
  24. ZOFRAN [Concomitant]
     Dosage: 2 MG, Q 4 HRS PRN

REACTIONS (1)
  - BACILLUS INFECTION [None]
